FAERS Safety Report 18623716 (Version 4)
Quarter: 2021Q4

REPORT INFORMATION
  Report Type: Report from Study
  Country: None (occurrence: US)
  Receive Date: 20201216
  Receipt Date: 20211019
  Transmission Date: 20220303
  Serious: Yes (Hospitalization, Other)
  Sender: FDA-Public Use
  Company Number: US-ABBVIE-20K-163-3692835-00

PATIENT
  Age: 80 Year
  Sex: Male
  Weight: 90.8 kg

DRUGS (1)
  1. HUMIRA [Suspect]
     Active Substance: ADALIMUMAB
     Indication: Psoriasis
     Route: 058

REACTIONS (8)
  - Hospice care [Recovered/Resolved]
  - Dementia [Unknown]
  - Bedridden [Not Recovered/Not Resolved]
  - Dysstasia [Not Recovered/Not Resolved]
  - Gait inability [Not Recovered/Not Resolved]
  - Malaise [Unknown]
  - Unevaluable event [Unknown]
  - Back disorder [Unknown]

NARRATIVE: CASE EVENT DATE: 20200601
